FAERS Safety Report 9349089 (Version 1)
Quarter: 2013Q2

REPORT INFORMATION
  Report Type: Spontaneous
  Country: BR (occurrence: BR)
  Receive Date: 20130614
  Receipt Date: 20130614
  Transmission Date: 20140414
  Serious: Yes (Hospitalization)
  Sender: FDA-Public Use
  Company Number: BR-PFIZER INC-2013176207

PATIENT
  Age: 43 Year
  Sex: Female

DRUGS (2)
  1. CELEBRA [Suspect]
     Dosage: 200 MG, 2X/DAY (ONE CAPSULE TWICE A DAY)
     Route: 048
     Dates: start: 2012
  2. RIVOTRIL [Concomitant]
     Dosage: UNK

REACTIONS (2)
  - Arthropathy [Unknown]
  - Pain [Not Recovered/Not Resolved]
